FAERS Safety Report 8981132 (Version 1)
Quarter: 2012Q4

REPORT INFORMATION
  Report Type: 
  Country: GB (occurrence: GB)
  Receive Date: 20121221
  Receipt Date: 20121221
  Transmission Date: 20130627
  Serious: Yes (Other)
  Sender: FDA-Public Use
  Company Number: GB-009507513-1212GBR007650

PATIENT

DRUGS (1)
  1. ALENDRONATE SODIUM [Suspect]
     Dosage: Two doses
     Route: 048

REACTIONS (3)
  - Eye swelling [Unknown]
  - Swelling face [Recovered/Resolved]
  - Lip swelling [Unknown]
